FAERS Safety Report 15553699 (Version 2)
Quarter: 2018Q4

REPORT INFORMATION
  Report Type: Report from Study
  Country: US (occurrence: US)
  Receive Date: 20181026
  Receipt Date: 20181122
  Transmission Date: 20190205
  Serious: No
  Sender: FDA-Public Use
  Company Number: US-SHIRE-US201840146

PATIENT
  Age: 73 Year
  Sex: Female

DRUGS (3)
  1. GATTEX [Suspect]
     Active Substance: TEDUGLUTIDE\WATER
     Indication: SHORT-BOWEL SYNDROME
     Dosage: 0.1930 UNK, UNK
     Route: 065
  2. GATTEX [Suspect]
     Active Substance: TEDUGLUTIDE\WATER
     Indication: ILEOSTOMY
  3. GATTEX [Suspect]
     Active Substance: TEDUGLUTIDE\WATER
     Indication: GASTROINTESTINAL DISORDER
     Dosage: 1.93 MG, 1X/DAY:QD
     Route: 058
     Dates: start: 20180808

REACTIONS (3)
  - Stoma complication [Unknown]
  - Weight decreased [Unknown]
  - Gastrointestinal stoma complication [Unknown]

NARRATIVE: CASE EVENT DATE: 20181012
